FAERS Safety Report 4538647-4 (Version None)
Quarter: 2004Q4

REPORT INFORMATION
  Report Type: 
  Country: None (occurrence: None)
  Receive Date: 20041223
  Receipt Date: 20041209
  Transmission Date: 20050328
  Serious: Yes (Other)
  Sender: FDA-Public Use
  Company Number: 2004-DE-06157GD(0)

PATIENT

DRUGS (2)
  1. NEVIRAPINE (NEVIRAPINE) (NR) (NEVIRAPINE) [Suspect]
     Indication: HIV INFECTION
  2. ANTIRETROVIRALS 9ANTIVIRALS FOR SYSTEMIC USE) (NR) [Suspect]
     Indication: HIV INFECTION

REACTIONS (1)
  - PNEUMOCYSTIS CARINII PNEUMONIA [None]
